FAERS Safety Report 13705595 (Version 3)
Quarter: 2017Q3

REPORT INFORMATION
  Report Type: Report from Study
  Country: CA (occurrence: CA)
  Receive Date: 20170630
  Receipt Date: 20170804
  Transmission Date: 20171127
  Serious: Yes (Hospitalization, Other)
  Sender: FDA-Public Use
  Company Number: CA-IPSEN BIOPHARMACEUTICALS, INC.-2017-06196

PATIENT
  Age: 38 Year
  Sex: Male

DRUGS (3)
  1. SOMATULINE AUTOGEL 120MG [Suspect]
     Active Substance: LANREOTIDE ACETATE
     Indication: AESTHESIONEUROBLASTOMA
     Dosage: 120 MG
     Route: 058
     Dates: start: 20170524, end: 2017
  2. SOMATULINE AUTOGEL 120MG [Suspect]
     Active Substance: LANREOTIDE ACETATE
     Indication: NEUROENDOCRINE TUMOUR
  3. SOMATULINE AUTOGEL 120MG [Suspect]
     Active Substance: LANREOTIDE ACETATE
     Indication: OFF LABEL USE
     Dosage: 120 MG
     Route: 058
     Dates: start: 20170725

REACTIONS (7)
  - Flatulence [Recovered/Resolved]
  - Eye swelling [Recovering/Resolving]
  - Rash pustular [Recovering/Resolving]
  - Swelling face [Recovering/Resolving]
  - Pneumocystis jirovecii pneumonia [Recovering/Resolving]
  - Diarrhoea [Recovered/Resolved]
  - Off label use [Unknown]

NARRATIVE: CASE EVENT DATE: 20170525
